FAERS Safety Report 7678896-X (Version None)
Quarter: 2011Q3

REPORT INFORMATION
  Report Type: 
  Country: None (occurrence: None)
  Receive Date: 20110812
  Receipt Date: 20110804
  Transmission Date: 20111222
  Serious: Yes (Hospitalization)
  Sender: FDA-Public Use
  Company Number: US-BIOGENIDEC-2010BI036257

PATIENT
  Age: 52 Year
  Sex: Female
  Weight: 78 kg

DRUGS (1)
  1. AVONEX [Suspect]
     Indication: MULTIPLE SCLEROSIS
     Route: 030
     Dates: start: 20080108

REACTIONS (23)
  - ARTHRITIS INFECTIVE [None]
  - ARTHRITIS [None]
  - INJECTION SITE HAEMORRHAGE [None]
  - ARTHRALGIA [None]
  - JOINT SWELLING [None]
  - RESTLESSNESS [None]
  - INSOMNIA [None]
  - FATIGUE [None]
  - HEADACHE [None]
  - HYPERTHYROIDISM [None]
  - GOUT [None]
  - DELIRIUM [None]
  - COORDINATION ABNORMAL [None]
  - ABNORMAL BEHAVIOUR [None]
  - PAIN [None]
  - ASTHENIA [None]
  - NEUROPATHY PERIPHERAL [None]
  - INFLUENZA LIKE ILLNESS [None]
  - MEMORY IMPAIRMENT [None]
  - FEAR [None]
  - PROCEDURAL PAIN [None]
  - BURNING SENSATION [None]
  - PRURITUS [None]
